FAERS Safety Report 9101299 (Version 3)
Quarter: 2013Q2

REPORT INFORMATION
  Report Type: Report from Study
  Country: UY (occurrence: UY)
  Receive Date: 20130218
  Receipt Date: 20130514
  Transmission Date: 20140414
  Serious: Yes (Hospitalization, Other)
  Sender: FDA-Public Use
  Company Number: UY-ABBOTT-13P-168-1040660-00

PATIENT
  Age: 63 Year
  Sex: Female

DRUGS (3)
  1. HUMIRA [Suspect]
     Indication: RHEUMATOID ARTHRITIS
     Dates: start: 20120510, end: 20121110
  2. HUMIRA [Suspect]
     Dates: start: 20130424
  3. SERVICOR [Concomitant]
     Indication: PRODUCT USED FOR UNKNOWN INDICATION

REACTIONS (5)
  - Joint injury [Recovered/Resolved]
  - Arthralgia [Recovering/Resolving]
  - Joint swelling [Recovered/Resolved]
  - Erythema [Recovered/Resolved]
  - Joint warmth [Recovered/Resolved]
